FAERS Safety Report 15856982 (Version 2)
Quarter: 2019Q1

REPORT INFORMATION
  Report Type: Spontaneous
  Country: US (occurrence: US)
  Receive Date: 20190123
  Receipt Date: 20190228
  Transmission Date: 20190417
  Serious: Yes (Other)
  Sender: FDA-Public Use
  Company Number: PHEH2019US002872

PATIENT
  Age: 69 Year
  Sex: Female

DRUGS (1)
  1. NEVANAC [Suspect]
     Active Substance: NEPAFENAC
     Indication: CATARACT OPERATION
     Dosage: 3 GTT, QD
     Route: 047
     Dates: start: 20190114, end: 20190114

REACTIONS (12)
  - Panic attack [Unknown]
  - Chest discomfort [Unknown]
  - Pharyngeal oedema [Unknown]
  - Consciousness fluctuating [Unknown]
  - Excessive eye blinking [Unknown]
  - Eye irritation [Recovered/Resolved]
  - Swollen tongue [Unknown]
  - Flushing [Unknown]
  - Blepharospasm [Unknown]
  - Hypersensitivity [Unknown]
  - Palpitations [Unknown]
  - Gingival pain [Unknown]

NARRATIVE: CASE EVENT DATE: 20190114
